FAERS Safety Report 12503573 (Version 1)
Quarter: 2016Q2

REPORT INFORMATION
  Report Type: Spontaneous
  Country: US (occurrence: None)
  Receive Date: 20160627
  Receipt Date: 20160627
  Transmission Date: 20160815
  Serious: No
  Sender: FDA-Public Use
  Company Number: None

PATIENT
  Age: 52 Year
  Sex: Female
  Weight: 68.04 kg

DRUGS (4)
  1. GARDEN OF LIFE VITAMIN CODE 50 + WISER WOMEN [Concomitant]
  2. ARTHROTEC [Concomitant]
     Active Substance: DICLOFENAC SODIUM\MISOPROSTOL
  3. DICLO/MISOPR 75-0.2MG GENERIC, 75 MG [Suspect]
     Active Substance: DICLOFENAC SODIUM\MISOPROSTOL
     Indication: ARTHRITIS
     Dates: start: 20160615
  4. DICLO/MISOPR 75-0.2MG GENERIC, 75 MG [Suspect]
     Active Substance: DICLOFENAC SODIUM\MISOPROSTOL
     Indication: INFLAMMATION
     Dates: start: 20160615

REACTIONS (6)
  - Arthritis [None]
  - Drug ineffective [None]
  - Insomnia [None]
  - Frustration tolerance decreased [None]
  - Immobile [None]
  - Gastric disorder [None]

NARRATIVE: CASE EVENT DATE: 20160626
